FAERS Safety Report 4588151-2 (Version None)
Quarter: 2005Q2

REPORT INFORMATION
  Report Type: 
  Country: None (occurrence: None)
  Receive Date: 20050221
  Receipt Date: 20050217
  Transmission Date: 20051028
  Serious: Yes (Life-Threatening)
  Sender: FDA-Public Use
  Company Number: PHBS2005BR02410

PATIENT
  Age: 62 Year
  Sex: Female
  Weight: 74 kg

DRUGS (1)
  1. DIOVAN AMLO [Suspect]
     Indication: HYPERTENSION
     Dosage: 1 DF, QD
     Route: 048
     Dates: start: 20050210, end: 20050214

REACTIONS (3)
  - LARYNGEAL OEDEMA [None]
  - MUCOSAL DRYNESS [None]
  - RESPIRATORY DISORDER [None]
